FAERS Safety Report 25591002 (Version 1)
Quarter: 2025Q3

REPORT INFORMATION
  Report Type: Spontaneous
  Country: GB (occurrence: GB)
  Receive Date: 20250722
  Receipt Date: 20250722
  Transmission Date: 20251020
  Serious: Yes (Hospitalization)
  Sender: PFIZER
  Company Number: GB-MHRA-TPP9916467C12144964YC1752749312805

PATIENT
  Age: 85 Year
  Sex: Female
  Weight: 55 kg

DRUGS (9)
  1. PIPERACILLIN SODIUM\TAZOBACTAM SODIUM [Suspect]
     Active Substance: PIPERACILLIN SODIUM\TAZOBACTAM SODIUM
  2. SERTRALINE [Concomitant]
     Active Substance: SERTRALINE HYDROCHLORIDE
     Indication: Ill-defined disorder
     Dosage: UNK, 1X/DAY (TAKE ONE IN THE MORNING)
     Dates: start: 20250623
  3. COCODAMOL [Concomitant]
     Active Substance: ACETAMINOPHEN\CODEINE PHOSPHATE
     Indication: Ill-defined disorder
     Dates: start: 20250324
  4. CHOLECALCIFEROL [Concomitant]
     Active Substance: CHOLECALCIFEROL
     Indication: Ill-defined disorder
     Dosage: 1 DF, DAILY (ONE TO BE TAKEN DAILY)
     Dates: start: 20250324
  5. DICLOFENAC DIETHYLAMINE [Concomitant]
     Active Substance: DICLOFENAC DIETHYLAMINE
     Indication: Ill-defined disorder
     Dosage: UNK, 3X/DAY (APPLY THREE TIMES DAILY)
     Dates: start: 20250324
  6. POLYVINYL ALCOHOL [Concomitant]
     Active Substance: POLYVINYL ALCOHOL
     Indication: Ill-defined disorder
     Dates: start: 20250324
  7. PENICILLIN V [Concomitant]
     Active Substance: PENICILLIN V
     Indication: Ill-defined disorder
     Dosage: 1 DF, 2X/DAY (ONE TO BE TAKEN TWICE A DAY)
     Dates: start: 20250324
  8. POLYVINYL ALCOHOL [Concomitant]
     Active Substance: POLYVINYL ALCOHOL
     Indication: Ill-defined disorder
     Dates: start: 20250324
  9. RAMIPRIL [Concomitant]
     Active Substance: RAMIPRIL
     Indication: Ill-defined disorder
     Dosage: 1 DF, 1X/DAY (ONE TO BE TAKEN EACH DAY)
     Dates: start: 20250324

REACTIONS (2)
  - Flushing [Recovered/Resolved]
  - Rash [Recovered/Resolved]
